FAERS Safety Report 4509632-3 (Version None)
Quarter: 2004Q4

REPORT INFORMATION
  Report Type: 
  Country: None (occurrence: None)
  Receive Date: 20041124
  Receipt Date: 20041102
  Transmission Date: 20050328
  Serious: Yes (Other)
  Sender: FDA-Public Use
  Company Number: PHBS2004JP14858

PATIENT
  Age: 26 Year
  Sex: Male

DRUGS (5)
  1. NEORAL [Suspect]
     Indication: COLLAGEN DISORDER
     Dosage: 75 MG, BID
     Route: 065
     Dates: start: 20010101
  2. MEDROL [Suspect]
     Indication: COLLAGEN DISORDER
     Dosage: 10 MG/D
     Route: 048
     Dates: start: 20010101
  3. IMURAN [Suspect]
     Indication: COLLAGEN DISORDER
     Dosage: 25 MG/D
     Route: 048
  4. PERSANTIN-L [Suspect]
     Indication: COLLAGEN DISORDER
     Dosage: 200 MG/D
     Route: 048
     Dates: start: 20010101
  5. BREDININ [Suspect]
     Indication: COLLAGEN DISORDER
     Dosage: 1 G/D
     Route: 048
     Dates: start: 20010101

REACTIONS (2)
  - BLOOD CREATINE PHOSPHOKINASE INCREASED [None]
  - MYALGIA [None]
